FAERS Safety Report 8803521 (Version 1)
Quarter: 2012Q4

REPORT INFORMATION
  Report Type: 
  Country: US (occurrence: US)
  Receive Date: 20120924
  Receipt Date: 20120924
  Transmission Date: 20130627
  Serious: Yes (Other)
  Sender: FDA-Public Use
  Company Number: US-PFIZER INC-2012234277

PATIENT
  Age: 75 Year
  Sex: Male
  Weight: 77.1 kg

DRUGS (16)
  1. DILANTIN [Suspect]
     Indication: CONVULSION
     Dosage: 100 mg, 2x/day
     Route: 048
     Dates: start: 20120612, end: 2012
  2. DILANTIN [Suspect]
     Dosage: 200 mg, 2x/day
     Route: 048
     Dates: start: 2012
  3. ARICEPT [Concomitant]
     Dosage: UNK
  4. KLONOPIN [Concomitant]
     Dosage: UNK
  5. LEXAPRO [Concomitant]
     Dosage: UNK
  6. LASIX [Concomitant]
     Dosage: UNK
  7. COREG [Concomitant]
     Dosage: UNK
  8. COUMADIN [Concomitant]
     Dosage: UNK
  9. ENDURON [Concomitant]
     Dosage: UNK
  10. ALLOPURINOL [Concomitant]
     Dosage: UNK
  11. PREVACID [Concomitant]
     Dosage: UNK
  12. PLAVIX [Concomitant]
     Dosage: UNK
  13. LOSARTAN [Concomitant]
     Dosage: UNK
  14. DIGOXIN [Concomitant]
     Dosage: 0.25 mg, UNK
  15. POTASSIUM [Concomitant]
     Dosage: 120 mEq, 1x/day
  16. PRAVASTATIN [Concomitant]
     Dosage: UNK

REACTIONS (3)
  - Mental impairment [Not Recovered/Not Resolved]
  - Somnolence [Not Recovered/Not Resolved]
  - Drug ineffective [Unknown]
